FAERS Safety Report 13349784 (Version 1)
Quarter: 2017Q1

REPORT INFORMATION
  Report Type: Spontaneous
  Country: US (occurrence: US)
  Receive Date: 20170318
  Receipt Date: 20170318
  Transmission Date: 20170429
  Serious: No
  Sender: FDA-Public Use
  Company Number: None

PATIENT
  Age: 8 Year
  Sex: Female
  Weight: 23.4 kg

DRUGS (3)
  1. TAMIFLU [Suspect]
     Active Substance: OSELTAMIVIR PHOSPHATE
     Indication: INFLUENZA
     Route: 048
     Dates: start: 20170317, end: 20170317
  2. PROBIOTIC [Concomitant]
     Active Substance: PROBIOTICS NOS
  3. VITAMIN GUMMIES [Concomitant]

REACTIONS (4)
  - Drug ineffective [None]
  - Pallor [None]
  - Dark circles under eyes [None]
  - Vomiting [None]

NARRATIVE: CASE EVENT DATE: 20170317
